FAERS Safety Report 13981103 (Version 1)
Quarter: 2017Q3

REPORT INFORMATION
  Report Type: Spontaneous
  Country: US (occurrence: None)
  Receive Date: 20170915
  Receipt Date: 20170915
  Transmission Date: 20171128
  Serious: Yes (Hospitalization)
  Sender: FDA-Public Use
  Company Number: None

PATIENT
  Age: 73 Year
  Sex: Female

DRUGS (14)
  1. ATORVASTATIN [Suspect]
     Active Substance: ATORVASTATIN
     Indication: ATRIAL FIBRILLATION
     Route: 048
     Dates: start: 20170323, end: 20170822
  2. BACLOFEN. [Concomitant]
     Active Substance: BACLOFEN
  3. CALCITRIOL. [Concomitant]
     Active Substance: CALCITRIOL
  4. DOCUSATE [Concomitant]
     Active Substance: DOCUSATE
  5. SALMETEROL [Concomitant]
     Active Substance: SALMETEROL
  6. LACOSAMIDE. [Suspect]
     Active Substance: LACOSAMIDE
     Route: 048
  7. ALBUTEROL. [Concomitant]
     Active Substance: ALBUTEROL
  8. TIOTROPIUM [Concomitant]
     Active Substance: TIOTROPIUM
  9. WARFARIN [Concomitant]
     Active Substance: WARFARIN
  10. ACETAMINOPHEN. [Concomitant]
     Active Substance: ACETAMINOPHEN
  11. METOPROLOL SUCCINATE. [Concomitant]
     Active Substance: METOPROLOL SUCCINATE
  12. FAMOTIDINE. [Concomitant]
     Active Substance: FAMOTIDINE
  13. FLUTICASONE. [Concomitant]
     Active Substance: FLUTICASONE
  14. SENNA [Concomitant]
     Active Substance: SENNA LEAF\SENNOSIDES\SENNOSIDES A AND B

REACTIONS (14)
  - Heterotaxia [None]
  - Hypotension [None]
  - International normalised ratio increased [None]
  - Dextrocardia [None]
  - Asthenia [None]
  - Sinus tachycardia [None]
  - Blood creatinine increased [None]
  - Coagulopathy [None]
  - Tachycardia [None]
  - Blood bilirubin increased [None]
  - Hepatic congestion [None]
  - Aspartate aminotransferase increased [None]
  - Fatigue [None]
  - Alanine aminotransferase increased [None]

NARRATIVE: CASE EVENT DATE: 20170822
